FAERS Safety Report 8936590 (Version 1)
Quarter: 2012Q4

REPORT INFORMATION
  Report Type: 
  Country: IT (occurrence: IT)
  Receive Date: 20121130
  Receipt Date: 20121130
  Transmission Date: 20130627
  Serious: Yes (Hospitalization)
  Sender: FDA-Public Use
  Company Number: IT-WATSON-2012-20733

PATIENT
  Age: 70 Year
  Sex: Male

DRUGS (8)
  1. TRIAZOLAM [Suspect]
     Indication: MULTIPLE DRUG OVERDOSE INTENTIONAL
     Dosage: 5 mg, single
     Route: 048
     Dates: start: 20121107, end: 20121107
  2. CARDIOASPIRIN [Suspect]
     Indication: MULTIPLE DRUG OVERDOSE
     Dosage: 300 Mg milligram(s)  Interval= 1 Total(s)
     Route: 048
     Dates: start: 20121107, end: 20121107
  3. QUINAPRIL/HYDROCHLOROTHIAZIDE ACTAVIS [Concomitant]
     Indication: PRODUCT USED FOR UNKNOWN INDICATION
     Dosage: UNK, unknown
     Route: 065
  4. TORVAST [Concomitant]
     Indication: PRODUCT USED FOR UNKNOWN INDICATION
     Dosage: UNK, unknown
     Route: 065
  5. CARVEDILOL [Concomitant]
     Indication: PRODUCT USED FOR UNKNOWN INDICATION
     Dosage: UNK, unknown
     Route: 065
  6. XERISTAR [Concomitant]
     Indication: PRODUCT USED FOR UNKNOWN INDICATION
     Dosage: UNK, unknown
     Route: 065
  7. MIRTAZAPIN [Concomitant]
     Indication: PRODUCT USED FOR UNKNOWN INDICATION
     Dosage: UNK, unknown
     Route: 065
  8. DERMATRANS                         /00003201/ [Concomitant]
     Indication: PRODUCT USED FOR UNKNOWN INDICATION
     Dosage: UNK, unknown
     Route: 065

REACTIONS (4)
  - Sopor [Recovering/Resolving]
  - Hypokalaemia [Recovering/Resolving]
  - Rhonchi [Recovering/Resolving]
  - Overdose [Recovering/Resolving]
